FAERS Safety Report 10450040 (Version 1)
Quarter: 2014Q3

REPORT INFORMATION
  Report Type: Spontaneous
  Country: US (occurrence: None)
  Receive Date: 20140911
  Receipt Date: 20140911
  Transmission Date: 20150326
  Serious: Yes (Hospitalization)
  Sender: FDA-Public Use
  Company Number: None

PATIENT
  Age: 74 Year
  Sex: Male
  Weight: 100.7 kg

DRUGS (1)
  1. SULFAMETHOXAZOLE/TRIMETHOPRIM [Suspect]
     Active Substance: SULFAMETHOXAZOLE\TRIMETHOPRIM
     Indication: CELLULITIS
     Route: 048
     Dates: start: 20140611, end: 20140618

REACTIONS (8)
  - Rash papular [None]
  - Transaminases increased [None]
  - International normalised ratio increased [None]
  - Rash erythematous [None]
  - Refusal of treatment by patient [None]
  - Hypotension [None]
  - Pyrexia [None]
  - Hypersensitivity [None]

NARRATIVE: CASE EVENT DATE: 20140618
